FAERS Safety Report 15397651 (Version 2)
Quarter: 2018Q4

REPORT INFORMATION
  Report Type: Spontaneous
  Country: FR (occurrence: FR)
  Receive Date: 20180918
  Receipt Date: 20180927
  Transmission Date: 20190204
  Serious: Yes (Other)
  Sender: FDA-Public Use
  Company Number: FR-TEVA-2018-FR-955333

PATIENT
  Sex: Female

DRUGS (2)
  1. ROSUVASTATINE TEVA 10 MG [Suspect]
     Active Substance: ROSUVASTATIN
     Dosage: 10 MILLIGRAM DAILY;
     Route: 065
     Dates: start: 201802, end: 20180910
  2. ROSUVASTATINE TEVA 10 MG [Suspect]
     Active Substance: ROSUVASTATIN
     Dates: end: 20180915

REACTIONS (5)
  - Skin plaque [Not Recovered/Not Resolved]
  - Blister [Not Recovered/Not Resolved]
  - Dry mouth [Not Recovered/Not Resolved]
  - Fungal infection [Recovering/Resolving]
  - Pruritus [Not Recovered/Not Resolved]
